FAERS Safety Report 13657387 (Version 1)
Quarter: 2017Q2

REPORT INFORMATION
  Report Type: Spontaneous
  Country: US (occurrence: US)
  Receive Date: 20170615
  Receipt Date: 20170615
  Transmission Date: 20170830
  Serious: Yes (Hospitalization, Other)
  Sender: FDA-Public Use
  Company Number: US-ASTRAZENECA-2006UW26217

PATIENT
  Age: 21699 Day
  Sex: Female
  Weight: 72.6 kg

DRUGS (8)
  1. BEVESPI AEROSPHERE [Suspect]
     Active Substance: FORMOTEROL FUMARATE\GLYCOPYRROLATE
     Indication: CHRONIC OBSTRUCTIVE PULMONARY DISEASE
     Dosage: 9/4.8 MICROGRAMS TWO PUFFS TWO TIMES A DAY
     Route: 055
     Dates: start: 20170504
  2. ADVAIR HFA [Concomitant]
     Active Substance: FLUTICASONE PROPIONATE\SALMETEROL XINAFOATE
  3. GLYBURIDE/METFORMIN [Concomitant]
     Active Substance: GLYBURIDE\METFORMIN
     Indication: TYPE 2 DIABETES MELLITUS
  4. SPIRIVA [Concomitant]
     Active Substance: TIOTROPIUM BROMIDE MONOHYDRATE
  5. NEXIUM [Suspect]
     Active Substance: ESOMEPRAZOLE MAGNESIUM
     Indication: GASTROOESOPHAGEAL REFLUX DISEASE
     Dosage: UNKNOWN
     Route: 048
     Dates: start: 201110, end: 2012
  6. NEXIUM [Suspect]
     Active Substance: ESOMEPRAZOLE MAGNESIUM
     Indication: GASTROOESOPHAGEAL REFLUX DISEASE
     Dosage: 40.0MG UNKNOWN
     Route: 048
     Dates: start: 20061118
  7. NEXIUM [Suspect]
     Active Substance: ESOMEPRAZOLE MAGNESIUM
     Indication: DYSPEPSIA
     Dosage: 40.0MG UNKNOWN
     Route: 048
     Dates: start: 20061118
  8. NEXIUM [Suspect]
     Active Substance: ESOMEPRAZOLE MAGNESIUM
     Indication: DYSPEPSIA
     Dosage: UNKNOWN
     Route: 048
     Dates: start: 201110, end: 2012

REACTIONS (15)
  - Memory impairment [Unknown]
  - Constipation [Unknown]
  - Pneumonia [Unknown]
  - Blood glucose decreased [Unknown]
  - Diarrhoea [Unknown]
  - Gait disturbance [Unknown]
  - Pulmonary mass [Unknown]
  - Back disorder [Unknown]
  - Blood glucose increased [Unknown]
  - Dysgeusia [Unknown]
  - Device issue [Unknown]
  - Weight decreased [Unknown]
  - Intentional product misuse [Unknown]
  - Hip fracture [Unknown]
  - Aortic aneurysm [Unknown]

NARRATIVE: CASE EVENT DATE: 20061121
